FAERS Safety Report 7668000-6 (Version None)
Quarter: 2011Q3

REPORT INFORMATION
  Report Type: 
  Country: None (occurrence: None)
  Receive Date: 20110808
  Receipt Date: 20110725
  Transmission Date: 20111222
  Serious: Yes (Hospitalization)
  Sender: FDA-Public Use
  Company Number: DE-ELI_LILLY_AND_COMPANY-DE201107006410

PATIENT
  Sex: Female

DRUGS (3)
  1. FORTEO [Suspect]
     Indication: OSTEOPOROSIS
     Dosage: UNK UNK, QD
     Route: 058
     Dates: start: 20110707
  2. CALCIUM ACETATE [Concomitant]
  3. PANTOPRAZOLE [Concomitant]

REACTIONS (3)
  - GASTRITIS [None]
  - DRUG TOLERANCE DECREASED [None]
  - GASTROINTESTINAL INFLAMMATION [None]
